FAERS Safety Report 7332609-X (Version None)
Quarter: 2011Q1

REPORT INFORMATION
  Report Type: 
  Country: None (occurrence: None)
  Receive Date: 20110304
  Receipt Date: 20110301
  Transmission Date: 20110831
  Serious: Yes (Other)
  Sender: FDA-Public Use
  Company Number: US-PFIZER INC-2010181867

PATIENT
  Sex: Female

DRUGS (3)
  1. NORVASC [Suspect]
     Indication: BLOOD PRESSURE
     Dosage: 5 MG, UNK
  2. NORVASC [Suspect]
     Dosage: 10 MG, UNK
  3. MAXZIDE [Concomitant]
     Indication: BLOOD PRESSURE
     Dosage: 37.5 MG, UNK

REACTIONS (3)
  - OEDEMA PERIPHERAL [None]
  - TALIPES [None]
  - LACRIMATION INCREASED [None]
